FAERS Safety Report 5642713-X (Version None)
Quarter: 2008Q1

REPORT INFORMATION
  Report Type: 
  Country: None (occurrence: None)
  Receive Date: 20080227
  Receipt Date: 20080227
  Transmission Date: 20080703
  Serious: Yes (Hospitalization)
  Sender: FDA-Public Use
  Company Number: None

PATIENT
  Sex: Female
  Weight: 99.7913 kg

DRUGS (5)
  1. COUMADIN [Suspect]
     Indication: ANTICOAGULANT THERAPY
     Dosage: 5MG PO DAILY (THERAPY DATES: PRIOR TO ADMISSION)
     Route: 048
  2. TORSEMIDE [Concomitant]
  3. ALLOPURINOL [Concomitant]
  4. COLCHICINE [Concomitant]
  5. TOPROL-XL [Concomitant]

REACTIONS (2)
  - COAGULOPATHY [None]
  - MUSCLE HAEMORRHAGE [None]
